FAERS Safety Report 13688586 (Version 1)
Quarter: 2017Q2

REPORT INFORMATION
  Report Type: Spontaneous
  Country: US (occurrence: US)
  Receive Date: 20170623
  Receipt Date: 20170623
  Transmission Date: 20170830
  Serious: Yes (Death, Life-Threatening, Hospitalization)
  Sender: FDA-Public Use
  Company Number: None

PATIENT
  Age: 74 Year
  Sex: Male
  Weight: 85.5 kg

DRUGS (6)
  1. NORVASC [Concomitant]
     Active Substance: AMLODIPINE BESYLATE
  2. ACYCLOVIR. [Concomitant]
     Active Substance: ACYCLOVIR
  3. GINSENG ROOT [Concomitant]
  4. PROMACTA [Concomitant]
     Active Substance: ELTROMBOPAG OLAMINE
  5. FOLIC ACID. [Concomitant]
     Active Substance: FOLIC ACID
  6. SOLIRIS [Suspect]
     Active Substance: ECULIZUMAB
     Indication: PAROXYSMAL NOCTURNAL HAEMOGLOBINURIA
     Dosage: ?          OTHER FREQUENCY:Q 2 WEEKS;?
     Route: 041
     Dates: start: 20140625, end: 20170517

REACTIONS (4)
  - Fungal sepsis [None]
  - Sudden death [None]
  - Acute myeloid leukaemia [None]
  - Scedosporium infection [None]

NARRATIVE: CASE EVENT DATE: 20170525
